FAERS Safety Report 8961326 (Version 1)
Quarter: 2012Q4

REPORT INFORMATION
  Report Type: 
  Country: US (occurrence: US)
  Receive Date: 20121212
  Receipt Date: 20121212
  Transmission Date: 20130627
  Serious: Yes (Hospitalization)
  Sender: FDA-Public Use
  Company Number: US-US-EMD SERONO, INC.-7174129

PATIENT
  Age: 48 None
  Sex: Female

DRUGS (1)
  1. REBIF [Suspect]
     Indication: MULTIPLE SCLEROSIS
     Route: 058
     Dates: start: 20091123

REACTIONS (6)
  - Vertigo [Recovering/Resolving]
  - Fall [Unknown]
  - Contusion [Unknown]
  - Swelling [Unknown]
  - Influenza [Recovering/Resolving]
  - Muscular weakness [Not Recovered/Not Resolved]
